FAERS Safety Report 12474992 (Version 1)
Quarter: 2016Q2

REPORT INFORMATION
  Report Type: Spontaneous
  Country: GB (occurrence: GB)
  Receive Date: 20160617
  Receipt Date: 20160617
  Transmission Date: 20160815
  Serious: Yes (Other)
  Sender: FDA-Public Use
  Company Number: GB-CIPLA LTD.-2016GB06595

PATIENT

DRUGS (1)
  1. TENOFOVIR [Suspect]
     Active Substance: TENOFOVIR
     Indication: CHRONIC HEPATITIS B
     Dosage: UNK
     Route: 065

REACTIONS (5)
  - Lethargy [Recovered/Resolved]
  - Blood parathyroid hormone increased [Recovered/Resolved]
  - Myalgia [Recovered/Resolved]
  - Back pain [Recovered/Resolved]
  - Vitamin D deficiency [Recovered/Resolved]
